FAERS Safety Report 7518643-5 (Version None)
Quarter: 2011Q2

REPORT INFORMATION
  Report Type: 
  Country: None (occurrence: None)
  Receive Date: 20110602
  Receipt Date: 20110525
  Transmission Date: 20111010
  Serious: Yes (Hospitalization, Other)
  Sender: FDA-Public Use
  Company Number: JP-PFIZER INC-2011112321

PATIENT
  Age: 57 Year
  Sex: Female

DRUGS (2)
  1. METHYLPEDNISOLONE SODIUM SUCCINATE [Suspect]
  2. PREDNISOLONE [Suspect]
     Dosage: 40 MG/ DAY

REACTIONS (1)
  - HYPOKALAEMIA [None]
